FAERS Safety Report 10073337 (Version 1)
Quarter: 2014Q2

REPORT INFORMATION
  Report Type: Spontaneous
  Country: SE (occurrence: SE)
  Receive Date: 20140411
  Receipt Date: 20140411
  Transmission Date: 20141212
  Serious: Yes (Other)
  Sender: FDA-Public Use
  Company Number: PHHY2014SE043970

PATIENT
  Sex: Male

DRUGS (1)
  1. RITALIN [Suspect]
     Dosage: UNK UKN, UNK
     Dates: start: 2013

REACTIONS (3)
  - Maculopathy [Unknown]
  - Eye disorder [Unknown]
  - Therapeutic response changed [Unknown]
